FAERS Safety Report 8236540-7 (Version None)
Quarter: 2012Q1

REPORT INFORMATION
  Report Type: 
  Country: None (occurrence: None)
  Receive Date: 20120327
  Receipt Date: 20120319
  Transmission Date: 20120608
  Serious: Yes (Hospitalization)
  Sender: FDA-Public Use
  Company Number: US-BAYER-2011-066518

PATIENT
  Age: 29 Year
  Sex: Female
  Weight: 47.619 kg

DRUGS (5)
  1. YASMIN [Suspect]
     Indication: CONTRACEPTION
     Dosage: 1 U, QD
     Route: 048
     Dates: start: 20080101, end: 20090801
  2. MULTI-VITAMIN [Concomitant]
     Indication: UNEVALUABLE EVENT
     Dosage: UNK
     Dates: start: 20080101, end: 20110101
  3. YAZ [Suspect]
     Indication: CONTRACEPTION
     Dosage: 1 U, QD
     Route: 048
     Dates: start: 20110201, end: 20110801
  4. TRIAMCINOLONE [Concomitant]
  5. ASCORBIC ACID [Concomitant]

REACTIONS (5)
  - PAIN [None]
  - CHOLECYSTITIS CHRONIC [None]
  - CHEST PAIN [None]
  - ABDOMINAL PAIN UPPER [None]
  - INJURY [None]
